FAERS Safety Report 23481963 (Version 1)
Quarter: 2024Q1

REPORT INFORMATION
  Report Type: Spontaneous
  Country: US (occurrence: US)
  Receive Date: 20240205
  Receipt Date: 20240205
  Transmission Date: 20240409
  Serious: No
  Sender: FDA-Public Use
  Company Number: US-JNJFOC-20240137267

PATIENT
  Age: 66 Year
  Sex: Male

DRUGS (1)
  1. MENS ROGAINE EXTRA STRENGTH [Suspect]
     Active Substance: MINOXIDIL
     Indication: Alopecia
     Dosage: TWICE A DAY ONCE IN THE MORNING AND ONCE AT NIGHT
     Route: 061
     Dates: start: 202307

REACTIONS (1)
  - Drug ineffective [Unknown]
